FAERS Safety Report 22215055 (Version 1)
Quarter: 2023Q2

REPORT INFORMATION
  Report Type: Spontaneous
  Country: GT (occurrence: GT)
  Receive Date: 20230415
  Receipt Date: 20230415
  Transmission Date: 20230721
  Serious: Yes (Death, Hospitalization)
  Sender: FDA-Public Use
  Company Number: GT-002147023-NVSC2023GT086491

PATIENT
  Age: 35 Year
  Sex: Male

DRUGS (1)
  1. GLIVEC [Suspect]
     Active Substance: IMATINIB MESYLATE
     Indication: Chronic myeloid leukaemia
     Dosage: 600 MG, (6X100MG)
     Route: 065

REACTIONS (3)
  - Cardiac arrest [Fatal]
  - Rheumatic fever [Unknown]
  - Renal injury [Unknown]

NARRATIVE: CASE EVENT DATE: 20221024
